FAERS Safety Report 12438380 (Version 3)
Quarter: 2018Q4

REPORT INFORMATION
  Report Type: Spontaneous
  Country: US (occurrence: US)
  Receive Date: 20160606
  Receipt Date: 20181221
  Transmission Date: 20190204
  Serious: Yes (Hospitalization, Other)
  Sender: FDA-Public Use
  Company Number: US-DSJP-DSU-2015-128790

PATIENT

DRUGS (2)
  1. BENICAR [Suspect]
     Active Substance: OLMESARTAN MEDOXOMIL
     Indication: HYPERTENSION
     Dosage: 20 MG, QD
     Route: 048
     Dates: start: 20040614
  2. BENICAR HCT [Suspect]
     Active Substance: HYDROCHLOROTHIAZIDE\OLMESARTAN MEDOXOMIL
     Indication: HYPERTENSION
     Dosage: UNK
     Dates: start: 20040614

REACTIONS (11)
  - Coeliac disease [Unknown]
  - Acute kidney injury [Unknown]
  - Depression [Unknown]
  - Erosive oesophagitis [Unknown]
  - Colitis ulcerative [Unknown]
  - Sprue-like enteropathy [Recovering/Resolving]
  - Constipation [Unknown]
  - Diverticulum intestinal [Unknown]
  - Gastritis erosive [Not Recovered/Not Resolved]
  - Hiatus hernia [Unknown]
  - Anxiety [Unknown]

NARRATIVE: CASE EVENT DATE: 200603
